FAERS Safety Report 5827747-4 (Version None)
Quarter: 2008Q3

REPORT INFORMATION
  Report Type: 
  Country: None (occurrence: None)
  Receive Date: 20080730
  Receipt Date: 20080723
  Transmission Date: 20090109
  Serious: Yes (Disabling, Other)
  Sender: FDA-Public Use
  Company Number: US-PFIZER INC-2006124041

PATIENT
  Sex: Female
  Weight: 59 kg

DRUGS (15)
  1. NORVASC [Suspect]
     Indication: HYPERTENSION
     Route: 048
     Dates: start: 19980628, end: 20000507
  2. LIPITOR [Suspect]
     Indication: BLOOD CHOLESTEROL INCREASED
     Route: 048
     Dates: start: 20000715, end: 20000815
  3. LESCOL [Suspect]
     Indication: BLOOD CHOLESTEROL INCREASED
     Route: 048
     Dates: start: 19990419, end: 20000507
  4. PLETAL [Suspect]
     Indication: INTERMITTENT CLAUDICATION
     Route: 048
     Dates: start: 20060202, end: 20060212
  5. ZOFRAN [Suspect]
     Indication: NAUSEA
     Route: 042
  6. STATINS [Suspect]
  7. TOPROL-XL [Concomitant]
  8. AMILORIDE HCL AND HYDROCHLOROTHIAZIDE [Concomitant]
  9. LEVOXYL [Concomitant]
  10. ASPIRIN [Concomitant]
  11. CALCIUM WITH VITAMIN D [Concomitant]
  12. STOOL SOFTENER [Concomitant]
  13. LOVAZA [Concomitant]
  14. VITAMIN TAB [Concomitant]
  15. DIOVAN HCT [Concomitant]

REACTIONS (10)
  - CEREBROVASCULAR ACCIDENT [None]
  - CORONARY ARTERY DISEASE [None]
  - DEAFNESS UNILATERAL [None]
  - HERNIA [None]
  - INTERMITTENT CLAUDICATION [None]
  - JOINT SWELLING [None]
  - MUSCLE DISORDER [None]
  - NAUSEA [None]
  - PAIN IN EXTREMITY [None]
  - VERTIGO [None]
